FAERS Safety Report 9964405 (Version 10)
Quarter: 2015Q3

REPORT INFORMATION
  Report Type: Report from Study
  Country: US (occurrence: US)
  Receive Date: 20140305
  Receipt Date: 20150810
  Transmission Date: 20151125
  Serious: Yes (Other)
  Sender: FDA-Public Use
  Company Number: US-SA-2013SA132708

PATIENT
  Age: 50 Year
  Sex: Female

DRUGS (3)
  1. AUBAGIO [Suspect]
     Active Substance: TERIFLUNOMIDE
     Indication: RELAPSING-REMITTING MULTIPLE SCLEROSIS
     Route: 048
     Dates: start: 20131118
  2. AUBAGIO [Suspect]
     Active Substance: TERIFLUNOMIDE
     Indication: RELAPSING-REMITTING MULTIPLE SCLEROSIS
     Route: 048
  3. AUBAGIO [Suspect]
     Active Substance: TERIFLUNOMIDE
     Indication: RELAPSING-REMITTING MULTIPLE SCLEROSIS
     Route: 048

REACTIONS (26)
  - Pain [Not Recovered/Not Resolved]
  - Insomnia [Unknown]
  - Back pain [Recovering/Resolving]
  - Acne [Unknown]
  - Seizure [Unknown]
  - Tremor [Unknown]
  - Muscular weakness [Unknown]
  - Diarrhoea [Unknown]
  - Nasal congestion [Unknown]
  - Acne [Unknown]
  - Muscle spasms [Unknown]
  - Feeling abnormal [Unknown]
  - Bladder disorder [Unknown]
  - Hypophagia [Unknown]
  - Laboratory test abnormal [Unknown]
  - Hair colour changes [Unknown]
  - Pain in extremity [Unknown]
  - Stress [Unknown]
  - Fatigue [Unknown]
  - Balance disorder [Unknown]
  - Nausea [Unknown]
  - Alopecia [Not Recovered/Not Resolved]
  - Memory impairment [Unknown]
  - Neck deformity [Unknown]
  - Sinusitis [Unknown]
  - Hypoaesthesia [Unknown]

NARRATIVE: CASE EVENT DATE: 20131118
